FAERS Safety Report 8409928-9 (Version None)
Quarter: 2012Q2

REPORT INFORMATION
  Report Type: 
  Country: None (occurrence: None)
  Receive Date: 20120605
  Receipt Date: 20120524
  Transmission Date: 20120825
  Serious: Yes (Hospitalization)
  Sender: FDA-Public Use
  Company Number: FR-BRISTOL-MYERS SQUIBB COMPANY-16631624

PATIENT
  Age: 58 Year
  Sex: Female

DRUGS (6)
  1. LEVOTHYROXINE SODIUM [Concomitant]
  2. FLECAINIDE ACETATE [Concomitant]
  3. IRBESARTAN AND HYDROCHLOROTHIAZIDE [Suspect]
     Indication: HYPERTENSION
     Dosage: 1DF=300/12.5MG SEVERAL YEARS
     Route: 048
  4. AMLODIPINE [Concomitant]
  5. ASPIRIN [Concomitant]
  6. BISOPROLOL FUMARATE [Concomitant]

REACTIONS (1)
  - TOXIC SKIN ERUPTION [None]
